FAERS Safety Report 5342178-1 (Version None)
Quarter: 2007Q2

REPORT INFORMATION
  Report Type: 
  Country: None (occurrence: None)
  Receive Date: 20070601
  Receipt Date: 20070525
  Transmission Date: 20071010
  Serious: Yes (Disabling)
  Sender: FDA-Public Use
  Company Number: B0471375A

PATIENT
  Age: 77 Year
  Sex: Male

DRUGS (7)
  1. REQUIP [Suspect]
     Indication: PARKINSON'S DISEASE
     Dosage: 3MG THREE TIMES PER DAY
     Route: 048
     Dates: start: 20061201, end: 20070422
  2. PERMAX [Suspect]
     Route: 065
     Dates: start: 20010901, end: 20061201
  3. NEODOPASTON [Concomitant]
     Indication: PARKINSON'S DISEASE
     Dates: start: 20010901
  4. DROXIDOPA [Concomitant]
     Dates: start: 20020601
  5. METLIGINE [Concomitant]
     Dosage: 4MG PER DAY
  6. MADOPAR [Concomitant]
  7. COMTAN [Concomitant]
     Dosage: 300MG PER DAY
     Dates: start: 20070423

REACTIONS (2)
  - ANXIETY [None]
  - VESTIBULAR NEURONITIS [None]
